FAERS Safety Report 25844703 (Version 1)
Quarter: 2025Q3

REPORT INFORMATION
  Report Type: Report from Study
  Country: US (occurrence: US)
  Receive Date: 20250925
  Receipt Date: 20250925
  Transmission Date: 20251020
  Serious: No
  Sender: SUNOVION
  Company Number: US-SMPA-2025SPA012023

PATIENT
  Age: 74 Year
  Sex: Male

DRUGS (16)
  1. ORGOVYX [Suspect]
     Active Substance: RELUGOLIX
     Indication: Prostate cancer
     Route: 048
  2. ORGOVYX [Suspect]
     Active Substance: RELUGOLIX
     Route: 048
  3. ALFUZOSIN [Concomitant]
     Active Substance: ALFUZOSIN
  4. ATORVASTATIN [Concomitant]
     Active Substance: ATORVASTATIN
  5. GLIPIZIDE [Concomitant]
     Active Substance: GLIPIZIDE
  6. LISINOPRIL [Concomitant]
     Active Substance: LISINOPRIL
  7. LOSARTAN [Concomitant]
     Active Substance: LOSARTAN
  8. OXYBUTYNIN [Concomitant]
     Active Substance: OXYBUTYNIN
  9. TADALAFIL [Concomitant]
     Active Substance: TADALAFIL
  10. NYSTATIN [Concomitant]
     Active Substance: NYSTATIN
  11. METOPROLOL SUCCINATE [Concomitant]
     Active Substance: METOPROLOL SUCCINATE
  12. RIVAROXABAN [Concomitant]
     Active Substance: RIVAROXABAN
  13. CRANBERRY [Concomitant]
     Active Substance: CRANBERRY
  14. VITAMIN C [Concomitant]
     Active Substance: ASCORBIC ACID
  15. VITAMIN D3 [Concomitant]
     Active Substance: CHOLECALCIFEROL
  16. ZINC GLUCONATE [Concomitant]
     Active Substance: ZINC GLUCONATE

REACTIONS (3)
  - Brain fog [Unknown]
  - Lethargy [Unknown]
  - Fatigue [Unknown]
